FAERS Safety Report 8136642-X (Version None)
Quarter: 2012Q1

REPORT INFORMATION
  Report Type: 
  Country: None (occurrence: None)
  Receive Date: 20120214
  Receipt Date: 20120207
  Transmission Date: 20120608
  Serious: Yes (Hospitalization)
  Sender: FDA-Public Use
  Company Number: ES-ROCHE-730223

PATIENT
  Sex: Female
  Weight: 64.3 kg

DRUGS (6)
  1. CALCIUM CARBONATE [Concomitant]
  2. LORAZEPAM [Concomitant]
  3. CARBOPLATIN [Suspect]
     Indication: OVARIAN CANCER
     Dosage: LAST DOSE PRIOR TO SAE: 23 AUG 2010
     Route: 042
  4. AVASTIN [Suspect]
     Indication: OVARIAN CANCER
     Dosage: LAST DOSE PRIOR TO SAE: 13 SEP 2010. FORM: INFUSION
     Route: 042
  5. PACLITAXEL [Suspect]
     Indication: OVARIAN CANCER
     Dosage: LAST DOSE PRIOR TO SAE: 23 AUG 2010
     Route: 042
  6. OMEPRAZOLE [Concomitant]

REACTIONS (1)
  - ATRIAL FIBRILLATION [None]
